FAERS Safety Report 6903805-8 (Version None)
Quarter: 2010Q3

REPORT INFORMATION
  Report Type: 
  Country: None (occurrence: None)
  Receive Date: 20100804
  Receipt Date: 20081216
  Transmission Date: 20110219
  Serious: No
  Sender: FDA-Public Use
  Company Number: US-PFIZER INC-2008156745

PATIENT
  Sex: Female
  Weight: 53.5 kg

DRUGS (5)
  1. LYRICA [Suspect]
     Indication: POST HERPETIC NEURALGIA
     Dosage: 50 MG, 2X/DAY
     Dates: start: 20070401
  2. LYRICA [Suspect]
     Dosage: 50 MG, AS NEEDED
  3. CADUET [Concomitant]
     Dosage: UNK
  4. FIBRE, DIETARY [Concomitant]
     Dosage: UNK
  5. ALEVE (CAPLET) [Concomitant]
     Dosage: UNK

REACTIONS (1)
  - PRURITUS [None]
